FAERS Safety Report 17461223 (Version 1)
Quarter: 2020Q1

REPORT INFORMATION
  Report Type: Spontaneous
  Country: US (occurrence: US)
  Receive Date: 20200226
  Receipt Date: 20200226
  Transmission Date: 20200409
  Serious: Yes (Other)
  Sender: FDA-Public Use
  Company Number: US-PFIZER INC-2020080886

PATIENT
  Age: 34 Year
  Sex: Female

DRUGS (6)
  1. DOXORUBICIN [Concomitant]
     Active Substance: DOXORUBICIN
     Dosage: 30 MG/M2, DAILY, (ON DAY 1) (SYSTEMIC) (EIGHT 21-DAY CYCLES) (4 ADDITIONAL CYCLES)
     Dates: start: 201808, end: 201810
  2. VINCRISTINE SULFATE. [Suspect]
     Active Substance: VINCRISTINE SULFATE
     Indication: NEPHROBLASTOMA
     Dosage: 2 MG/M2, CYCLIC, (ON DAYS 1, 8, AND 15, EIGHT 21-DAY CYCLES) (SYSTEMIC, COMPLETED 4 CYCLES)
     Dates: start: 201803, end: 201806
  3. CYCLOPHOSPHAMIDE. [Concomitant]
     Active Substance: CYCLOPHOSPHAMIDE
     Indication: NEPHROBLASTOMA
     Dosage: 1200 MG/M2, DAILY, (ON DAY 1 OF ODD-NUMBERED CYCLES ONLY) (SYSTEMIC TREATMENT) (4 ADDITIONAL CYCLES)
     Dates: start: 201808, end: 201810
  4. DOXORUBICIN [Concomitant]
     Active Substance: DOXORUBICIN
     Indication: NEPHROBLASTOMA
     Dosage: 30 MG/M2, DAILY, (ON DAY 1) (SYSTEMIC) (EIGHT 21-DAY CYCLES) (COMPLETED 4 CYCLES)
     Dates: start: 201803, end: 201806
  5. CYCLOPHOSPHAMIDE. [Concomitant]
     Active Substance: CYCLOPHOSPHAMIDE
     Dosage: 1200 MG/M2, DAILY, (ON DAY 1 OF ODD-NUMBERED CYCLES ONLY) (SYSTEMIC TREATMENT) (4 ADDITIONAL CYCLES)
     Dates: start: 201808, end: 201810
  6. VINCRISTINE SULFATE. [Suspect]
     Active Substance: VINCRISTINE SULFATE
     Dosage: 2 MG/M2, CYCLIC, (ON DAYS 1, 8, AND 15, EIGHT 21-DAY CYCLES, SYSTEMIC, HELD DURING CYCLES 7 AND 8)
     Dates: start: 201808

REACTIONS (2)
  - Maternal exposure during pregnancy [Unknown]
  - Neuropathy peripheral [Recovering/Resolving]
